FAERS Safety Report 7897088-2 (Version None)
Quarter: 2011Q4

REPORT INFORMATION
  Report Type: 
  Country: None (occurrence: None)
  Receive Date: 20111107
  Receipt Date: 20111027
  Transmission Date: 20120403
  Serious: No
  Sender: FDA-Public Use
  Company Number: US-JNJFOC-20111012393

PATIENT
  Age: 40 Year
  Sex: Female

DRUGS (1)
  1. DURAGESIC-100 [Suspect]
     Indication: ROAD TRAFFIC ACCIDENT
     Dosage: 100 MCG + 25 MCG PATCH
     Route: 062
     Dates: start: 20110901

REACTIONS (2)
  - BREAKTHROUGH PAIN [None]
  - DRUG DOSE OMISSION [None]
